FAERS Safety Report 20641242 (Version 4)
Quarter: 2022Q4

REPORT INFORMATION
  Report Type: Spontaneous
  Country: PL (occurrence: PL)
  Receive Date: 20220328
  Receipt Date: 20221004
  Transmission Date: 20230112
  Serious: Yes (Other)
  Sender: FDA-Public Use
  Company Number: PL-EGIS-HUN-2022-0206

PATIENT
  Age: 40 Year
  Sex: Female

DRUGS (20)
  1. ATORVASTATIN [Interacting]
     Active Substance: ATORVASTATIN
     Indication: Dyslipidaemia
     Dosage: 20 MILLIGRAM, ONCE A DAY
     Route: 048
  2. FLUCONAZOLE [Interacting]
     Active Substance: FLUCONAZOLE
     Indication: Vaginal discharge
     Dosage: UNK (200 MG/DAY WITH A PREPARATION CONTAINING CRANBERRY EXTRACT)
     Route: 048
  3. FLUCONAZOLE [Interacting]
     Active Substance: FLUCONAZOLE
     Indication: Dysuria
     Dosage: 200 MILLIGRAM, ONCE A DAY
     Route: 048
  4. FLUCONAZOLE [Interacting]
     Active Substance: FLUCONAZOLE
     Indication: Micturition disorder
  5. PAROXETINE [Suspect]
     Active Substance: PAROXETINE
     Indication: Depression
     Dosage: 40 MILLIGRAM, DAILY, (INITIALLY AT 20 MG/D, SUBSEQUENTLY AT 40 MG/D )
     Route: 048
  6. PAROXETINE [Suspect]
     Active Substance: PAROXETINE
     Dosage: 20 MILLIGRAM, DAILY
     Route: 048
  7. QUETIAPINE [Interacting]
     Active Substance: QUETIAPINE
     Indication: Depression
     Dosage: UNK, ONCE A DAY (INCREASED THE DOSE BY 50 MG (TAKEN BEFORE BEDTIME))
     Route: 065
  8. QUETIAPINE [Interacting]
     Active Substance: QUETIAPINE
     Indication: Affective disorder
     Dosage: 150 MILLIGRAM, DAILY
     Route: 065
  9. QUETIAPINE [Interacting]
     Active Substance: QUETIAPINE
     Dosage: 200 MILLIGRAM, ONCE A DAY
     Route: 048
  10. BIOTIN [Suspect]
     Active Substance: BIOTIN
     Indication: Alopecia
     Dosage: 20 MILLIGRAM, DAILY
     Route: 065
  11. CRANBERRY [Suspect]
     Active Substance: CRANBERRY
     Indication: Micturition disorder
     Dosage: 300 MILLIGRAM
     Route: 048
  12. CRANBERRY [Suspect]
     Active Substance: CRANBERRY
     Indication: Vaginal discharge
  13. CRANBERRY [Suspect]
     Active Substance: CRANBERRY
     Indication: Dysuria
  14. CRANBERRY [Suspect]
     Active Substance: CRANBERRY
     Indication: Blood uric acid increased
  15. LEVOTHYROXINE SODIUM [Concomitant]
     Active Substance: LEVOTHYROXINE SODIUM
     Indication: Hypothyroidism
     Dosage: UNK
     Route: 065
  16. ETHAMSYLATE [Concomitant]
     Active Substance: ETHAMSYLATE
     Indication: Epistaxis
     Dosage: UNK
     Route: 065
  17. ROSUVASTATIN CALCIUM [Concomitant]
     Active Substance: ROSUVASTATIN CALCIUM
     Indication: Dyslipidaemia
     Dosage: UNK
     Route: 065
  18. PREGABALIN AB [Concomitant]
     Indication: Depression
     Dosage: UNK
     Route: 065
  19. CRANBERRY [Suspect]
     Active Substance: CRANBERRY
     Indication: Vaginal discharge
     Dosage: 300 MILLIGRAM
     Route: 048
  20. CRANBERRY [Suspect]
     Active Substance: CRANBERRY
     Indication: Dysuria

REACTIONS (18)
  - Food interaction [Recovering/Resolving]
  - Hypothyroidism [Recovered/Resolved]
  - Asthenia [Recovered/Resolved]
  - Food interaction [Recovering/Resolving]
  - Drug interaction [Recovered/Resolved]
  - Epistaxis [Recovered/Resolved]
  - Leukopenia [Recovered/Resolved]
  - Thrombocytopenia [Recovered/Resolved]
  - Labelled drug-drug interaction issue [Recovering/Resolving]
  - Anxiety [Recovered/Resolved]
  - Disturbance in attention [Recovered/Resolved]
  - Dysuria [Recovered/Resolved]
  - Fatigue [Recovered/Resolved]
  - Memory impairment [Recovered/Resolved]
  - Somnolence [Recovered/Resolved]
  - Vaginal discharge [Unknown]
  - Thyroid disorder [Recovering/Resolving]
  - Product use in unapproved indication [Unknown]
